FAERS Safety Report 8811382 (Version 1)
Quarter: 2012Q4

REPORT INFORMATION
  Report Type: 
  Country: DE (occurrence: DE)
  Receive Date: 20120927
  Receipt Date: 20120927
  Transmission Date: 20130627
  Serious: Yes (Disabling)
  Sender: FDA-Public Use
  Company Number: DE-MERCK-1209DEU007217

PATIENT
  Age: 22 Year
  Sex: Male

DRUGS (1)
  1. PROPECIA [Suspect]
     Dosage: UNK
     Route: 048

REACTIONS (2)
  - Mental disorder [Not Recovered/Not Resolved]
  - Nervous system disorder [Not Recovered/Not Resolved]
